FAERS Safety Report 7759414-4 (Version None)
Quarter: 2011Q3

REPORT INFORMATION
  Report Type: 
  Country: None (occurrence: None)
  Receive Date: 20110919
  Receipt Date: 20110914
  Transmission Date: 20111222
  Serious: Yes (Death, Disabling)
  Sender: FDA-Public Use
  Company Number: GB-ROCHE-770636

PATIENT
  Sex: Female
  Weight: 74.9 kg

DRUGS (5)
  1. AVASTIN [Suspect]
     Route: 042
     Dates: start: 20110106, end: 20110211
  2. XELODA [Suspect]
     Dosage: 2 TAKEN IN ONE DAY, ONCE EVERY THREE WEEKS
     Route: 048
     Dates: start: 20100317, end: 20110428
  3. DOCETAXEL [Suspect]
     Route: 042
     Dates: start: 20101216, end: 20110211
  4. LANSOPRAZOLE [Concomitant]
     Indication: ILL-DEFINED DISORDER
     Route: 048
     Dates: start: 20101001
  5. DEXAMETHASONE [Concomitant]
     Route: 048
     Dates: start: 20101216, end: 20110211

REACTIONS (3)
  - PALMAR-PLANTAR ERYTHRODYSAESTHESIA SYNDROME [None]
  - PIGMENTATION DISORDER [None]
  - DEATH [None]
